FAERS Safety Report 21261205 (Version 2)
Quarter: 2022Q3

REPORT INFORMATION
  Report Type: Report from Study
  Country: CR (occurrence: CR)
  Receive Date: 20220826
  Receipt Date: 20220906
  Transmission Date: 20221026
  Serious: Yes (Hospitalization)
  Sender: FDA-Public Use
  Company Number: CR-BIOGEN-2022BI01138399

PATIENT
  Sex: Female
  Weight: 64 kg

DRUGS (12)
  1. AVONEX [Suspect]
     Active Substance: INTERFERON BETA-1A
     Indication: Relapsing multiple sclerosis
     Route: 050
     Dates: start: 20211222, end: 20220718
  2. AVONEX [Suspect]
     Active Substance: INTERFERON BETA-1A
     Route: 050
     Dates: start: 20211222, end: 20220712
  3. AVONEX [Suspect]
     Active Substance: INTERFERON BETA-1A
  4. AVONEX [Suspect]
     Active Substance: INTERFERON BETA-1A
  5. PROGESTERONE [Concomitant]
     Active Substance: PROGESTERONE
     Indication: Hormone replacement therapy
     Route: 050
  6. NITROFURANTOIN [Concomitant]
     Active Substance: NITROFURANTOIN
     Indication: Neurogenic bladder
     Route: 050
  7. BETAMETHASONE [Concomitant]
     Active Substance: BETAMETHASONE
     Indication: Product used for unknown indication
     Route: 050
  8. CARBAMAZEPINE [Concomitant]
     Active Substance: CARBAMAZEPINE
     Indication: Product used for unknown indication
     Dosage: 200 MG EVERY 12 HRS
     Route: 050
  9. DIMEFINHEDRATE [Concomitant]
     Indication: Skin lesion
     Route: 050
  10. BETAMECOL CHLORIDE [Concomitant]
     Indication: Product used for unknown indication
     Route: 050
  11. METROSIPROGESTERONE ACETATE [Concomitant]
     Indication: Product used for unknown indication
     Dosage: 5 ML (2), ONCE A DAY
     Route: 050
  12. FLUOXETINE [Concomitant]
     Active Substance: FLUOXETINE HYDROCHLORIDE
     Indication: Depression
     Dosage: 1 IN THE MORNING AND 1 AT NOON
     Route: 050

REACTIONS (10)
  - Multiple sclerosis relapse [Recovered/Resolved]
  - Rash macular [Recovered/Resolved]
  - Back pain [Recovered/Resolved]
  - Hypersensitivity [Not Recovered/Not Resolved]
  - Arthralgia [Recovered/Resolved]
  - Headache [Recovered/Resolved]
  - Respiratory distress [Not Recovered/Not Resolved]
  - Uterine polyp [Unknown]
  - Haemoglobin decreased [Recovered/Resolved]
  - Injection site pain [Unknown]

NARRATIVE: CASE EVENT DATE: 20220101
